FAERS Safety Report 20847582 (Version 1)
Quarter: 2022Q2

REPORT INFORMATION
  Report Type: Spontaneous
  Country: FR (occurrence: FR)
  Receive Date: 20220519
  Receipt Date: 20220519
  Transmission Date: 20220721
  Serious: Yes (Hospitalization)
  Sender: FDA-Public Use
  Company Number: None

PATIENT
  Age: 45 Year
  Sex: Male

DRUGS (1)
  1. VIMPAT [Suspect]
     Active Substance: LACOSAMIDE
     Indication: Epilepsy
     Dosage: 200MG 2 DOSAGE FORM DAILY
     Route: 048
     Dates: end: 20220502

REACTIONS (1)
  - Paranoia [Recovering/Resolving]

NARRATIVE: CASE EVENT DATE: 20220502
